FAERS Safety Report 4932904-5 (Version None)
Quarter: 2006Q1

REPORT INFORMATION
  Report Type: 
  Country: None (occurrence: None)
  Receive Date: 20060301
  Receipt Date: 20060301
  Transmission Date: 20060701
  Serious: Yes (Death)
  Sender: FDA-Public Use
  Company Number: None

PATIENT
  Age: 62 Year
  Sex: Female
  Weight: 58.9676 kg

DRUGS (1)
  1. ELIDEL [Suspect]
     Indication: HYPERSENSITIVITY
     Dosage: DAILY TOP
     Route: 061
     Dates: start: 20030324, end: 20030423

REACTIONS (1)
  - T-CELL LYMPHOMA [None]
